FAERS Safety Report 9915120 (Version 1)
Quarter: 2014Q1

REPORT INFORMATION
  Report Type: Spontaneous
  Country: MX (occurrence: MX)
  Receive Date: 20140220
  Receipt Date: 20140220
  Transmission Date: 20141002
  Serious: Yes (Other)
  Sender: FDA-Public Use
  Company Number: MX-ELI_LILLY_AND_COMPANY-MX201402005410

PATIENT
  Age: 52 Year
  Sex: Male

DRUGS (3)
  1. CIALIS [Suspect]
     Indication: ERECTILE DYSFUNCTION
     Dosage: 5 MG, QD
     Route: 065
  2. CIALIS [Suspect]
     Dosage: 20 MG, PRN
     Route: 065
  3. CIALIS [Suspect]
     Dosage: 40 MG, PRN
     Route: 065

REACTIONS (4)
  - Colour blindness acquired [Unknown]
  - Flushing [Unknown]
  - Drug ineffective [Unknown]
  - Overdose [Unknown]
